FAERS Safety Report 25980024 (Version 1)
Quarter: 2025Q4

REPORT INFORMATION
  Report Type: Spontaneous
  Country: TW (occurrence: None)
  Receive Date: 20251030
  Receipt Date: 20251030
  Transmission Date: 20260118
  Serious: Yes (Other)
  Sender: ENDO
  Company Number: TW-ENDO USA, INC.-2025-001956

PATIENT
  Age: 28 Year
  Sex: Male

DRUGS (5)
  1. AVEED [Suspect]
     Active Substance: TESTOSTERONE UNDECANOATE
     Indication: Performance enhancing product use
     Dosage: 600 MILLIGRAM, WEEKLY
  2. DROMOSTANOLONE [Suspect]
     Active Substance: DROMOSTANOLONE
     Indication: Performance enhancing product use
     Dosage: 200 MILLIGRAM, WEEKLY
  3. TRENBOLONE [Suspect]
     Active Substance: TRENBOLONE
     Indication: Performance enhancing product use
     Dosage: 100 MILLIGRAM, WEEKLY
  4. NANDROLONE [Suspect]
     Active Substance: NANDROLONE
     Indication: Performance enhancing product use
     Dosage: 200 MILLIGRAM, WEEKLY
  5. CLOMIPHENE [Concomitant]
     Active Substance: CLOMIPHENE
     Indication: Product used for unknown indication
     Dosage: UNK UNKNOWN, UNKNOWN
     Route: 065

REACTIONS (5)
  - Substance-induced psychotic disorder [Recovering/Resolving]
  - Blood testosterone increased [Unknown]
  - Oestradiol increased [Unknown]
  - Drug abuse [Recovered/Resolved]
  - Libido decreased [Recovered/Resolved]
